FAERS Safety Report 8474657-2 (Version None)
Quarter: 2012Q2

REPORT INFORMATION
  Report Type: 
  Country: None (occurrence: None)
  Receive Date: 20120628
  Receipt Date: 20120626
  Transmission Date: 20120825
  Serious: No
  Sender: FDA-Public Use
  Company Number: US-BAYER-2012-063648

PATIENT
  Age: 49 Year
  Sex: Female

DRUGS (4)
  1. VITAMIN D [Concomitant]
     Dosage: 400 U, UNK
  2. VITAMIN B-12 [Concomitant]
     Dosage: 2500 ?G, UNK
     Route: 058
  3. SYNTHROID [Concomitant]
     Dosage: 137 ?G, UNK
  4. BETASERON [Suspect]
     Dosage: 0.25 MG, QOD
     Route: 058

REACTIONS (2)
  - INFLUENZA LIKE ILLNESS [None]
  - INJECTION SITE RASH [None]
